FAERS Safety Report 6614970-4 (Version None)
Quarter: 2010Q1

REPORT INFORMATION
  Report Type: 
  Country: None (occurrence: None)
  Receive Date: 20100305
  Receipt Date: 20100226
  Transmission Date: 20100710
  Serious: Yes (Other)
  Sender: FDA-Public Use
  Company Number: JP-ELI_LILLY_AND_COMPANY-JP201002006073

PATIENT
  Sex: Female
  Weight: 61.2 kg

DRUGS (7)
  1. GEMCITABINE HCL [Suspect]
     Indication: PANCREATIC CARCINOMA NON-RESECTABLE
     Route: 042
     Dates: start: 20100210, end: 20100217
  2. BLINDED THERAPY [Suspect]
     Indication: PANCREATIC CARCINOMA NON-RESECTABLE
     Route: 058
     Dates: start: 20100210, end: 20100217
  3. SOLULACT [Concomitant]
     Indication: EATING DISORDER
     Dosage: 1000 ML, DAILY (1/D)
     Route: 042
     Dates: start: 20100210
  4. SOLDEM 3A [Concomitant]
     Indication: FLUID REPLACEMENT
     Dosage: 1000 ML, 2/D
     Dates: start: 20100215
  5. DUROTEP [Concomitant]
     Indication: PAIN
     Route: 062
     Dates: start: 20100217
  6. OMEPRAL [Concomitant]
     Indication: GASTRIC ULCER
     Dosage: 20 MG, 2/D
     Route: 042
     Dates: start: 20100218
  7. LANTUS [Concomitant]
     Indication: DIABETES MELLITUS
     Dosage: 2 U, DAILY (1/D)
     Route: 058
     Dates: start: 20100218

REACTIONS (1)
  - PULMONARY INFARCTION [None]
